FAERS Safety Report 11796609 (Version 1)
Quarter: 2015Q4

REPORT INFORMATION
  Report Type: Spontaneous
  Country: BR (occurrence: BR)
  Receive Date: 20151203
  Receipt Date: 20151203
  Transmission Date: 20160305
  Serious: No
  Sender: FDA-Public Use
  Company Number: BR-GLENMARK PHARMACEUTICALS INC, USA.-2015GMK019107

PATIENT
  Age: 40 Year
  Sex: Female

DRUGS (2)
  1. PRAMIPEXOLE. [Suspect]
     Active Substance: PRAMIPEXOLE
     Indication: RESTLESS LEGS SYNDROME
     Dosage: 0.5 MG, HS
  2. PRAMIPEXOLE. [Suspect]
     Active Substance: PRAMIPEXOLE
     Dosage: 0.125 MG, HS

REACTIONS (3)
  - Off label use [Unknown]
  - Kleptomania [Recovered/Resolved]
  - Therapeutic response unexpected [Unknown]
